FAERS Safety Report 15887576 (Version 1)
Quarter: 2019Q1

REPORT INFORMATION
  Report Type: Spontaneous
  Country: FR (occurrence: FR)
  Receive Date: 20190130
  Receipt Date: 20190130
  Transmission Date: 20190417
  Serious: Yes (Other)
  Sender: FDA-Public Use
  Company Number: FR-SUN PHARMACEUTICAL INDUSTRIES LTD-2019RR-197212

PATIENT
  Age: 62 Year
  Sex: Female
  Weight: 64 kg

DRUGS (14)
  1. NEULEPTIL 25 MG, COMPRIME PELLICULE SECABLE [Suspect]
     Active Substance: PERICIAZINE
     Indication: WRONG PATIENT RECEIVED PRODUCT
     Dosage: A 19 H IN TOTAL
     Route: 048
     Dates: start: 20181123, end: 20181123
  2. PANTOPRAZOLE ACTAVIS 20 MG, COMPRIME GASTRO-RESISTANT [Suspect]
     Active Substance: PANTOPRAZOLE SODIUM
     Indication: WRONG PATIENT RECEIVED PRODUCT
     Dosage: A 19 H IN TOTAL
     Route: 048
     Dates: start: 20181123, end: 20181123
  3. LEPTICUR 10 MG, COMPRIME [Suspect]
     Active Substance: TROPATEPINE HYDROCHLORIDE
     Indication: WRONG PATIENT RECEIVED PRODUCT
     Dosage: A 19 H ; IN TOTAL
     Route: 048
     Dates: start: 20181123, end: 20181123
  4. LEPTICUR 10 MG, COMPRIME [Concomitant]
     Active Substance: TROPATEPINE HYDROCHLORIDE
     Indication: PRODUCT USED FOR UNKNOWN INDICATION
     Dosage: LE MATIN
     Route: 048
  5. OROKEN 200 MG, COMPRIME PELLICULE [Suspect]
     Active Substance: CEFIXIME
     Indication: WRONG PATIENT RECEIVED PRODUCT
     Dosage: A 19 H IN TOTAL
     Route: 048
     Dates: start: 20181123, end: 20181123
  6. FORLAX 10 G, POUDRE POUR SOLUTION BUVABLE EN SACHET-DOSE [Suspect]
     Active Substance: POLYETHYLENE GLYCOL 4000
     Indication: WRONG PATIENT RECEIVED PRODUCT
     Dosage: IN TOTAL
     Route: 048
     Dates: start: 20181123, end: 20181123
  7. OLANZAPINE. [Suspect]
     Active Substance: OLANZAPINE
     Indication: WRONG PATIENT RECEIVED PRODUCT
     Dosage: ? 19 H ; IN TOTAL
     Route: 048
     Dates: start: 20181123, end: 20181123
  8. MOVICOL [Concomitant]
     Active Substance: POLYETHYLENE GLYCOL 3350\POTASSIUM CHLORIDE\SODIUM BICARBONATE\SODIUM CHLORIDE
     Indication: PRODUCT USED FOR UNKNOWN INDICATION
     Dosage: 2 DOSAGE FORM, QD
     Route: 048
  9. TERCIAN 50 MG/5 ML, SOLUTION INJECTABLE EN AMPOULE [Concomitant]
     Indication: PRODUCT USED FOR UNKNOWN INDICATION
     Route: 030
  10. DIFFU K, GELULE [Concomitant]
     Active Substance: POTASSIUM CHLORIDE
     Indication: PRODUCT USED FOR UNKNOWN INDICATION
     Dosage: 1800 MILLIGRAM, QD
     Route: 048
  11. DEPAKOTE [Concomitant]
     Active Substance: DIVALPROEX SODIUM
     Indication: PRODUCT USED FOR UNKNOWN INDICATION
     Dosage: LE SOIR
     Route: 048
  12. DEPAKOTE [Concomitant]
     Active Substance: DIVALPROEX SODIUM
     Indication: PRODUCT USED FOR UNKNOWN INDICATION
     Dosage: LE MATIN
     Route: 048
  13. RISPERIDONE. [Concomitant]
     Active Substance: RISPERIDONE
     Indication: PRODUCT USED FOR UNKNOWN INDICATION
     Dosage: 4 MILLIGRAM, QD
     Route: 048
  14. TERCIAN 100 MG, COMPRIME PELLICULE SECABLE [Suspect]
     Active Substance: CYAMEMAZINE
     Indication: WRONG PATIENT RECEIVED PRODUCT
     Dosage: ? 19 H ; IN TOTAL
     Route: 048
     Dates: start: 20181123, end: 20181123

REACTIONS (2)
  - Hypotension [Recovered/Resolved with Sequelae]
  - Wrong patient received product [Recovered/Resolved]

NARRATIVE: CASE EVENT DATE: 20181123
